FAERS Safety Report 7354641-2 (Version None)
Quarter: 2011Q1

REPORT INFORMATION
  Report Type: 
  Country: None (occurrence: None)
  Receive Date: 20110316
  Receipt Date: 20110313
  Transmission Date: 20110831
  Serious: No
  Sender: FDA-Public Use
  Company Number: US-PFIZER INC-2011055099

PATIENT
  Sex: Male
  Weight: 62.132 kg

DRUGS (2)
  1. LITHIUM [Concomitant]
     Dosage: UNK
  2. VIAGRA [Suspect]
     Indication: ERECTILE DYSFUNCTION
     Dosage: 100 MG, AS NEEDED
     Route: 048
     Dates: start: 20110313

REACTIONS (2)
  - PENILE PAIN [None]
  - PENILE SWELLING [None]
